FAERS Safety Report 4687884-7 (Version None)
Quarter: 2005Q2

REPORT INFORMATION
  Report Type: 
  Country: None (occurrence: None)
  Receive Date: 20050608
  Receipt Date: 20050608
  Transmission Date: 20051028
  Serious: Yes (Other)
  Sender: FDA-Public Use
  Company Number: None

PATIENT
  Sex: Male
  Weight: 77.25 kg

DRUGS (3)
  1. CAPECITABINE [Suspect]
     Indication: RECTAL CANCER
     Dosage: 600 MG/M2 DAILY DURING XRT
     Dates: start: 20041108
  2. IRINOTECAN [Suspect]
     Indication: RECTAL CANCER
     Dosage: 50 MG/M2 IV DAYS 1, 8, 15, 22, FOLLOWED BY SURGERY, FOLLOWED BY POSTOPERATIVE FOLFIRI CHEMOTHERAPY R
     Dates: start: 20041108
  3. RADIATION [Suspect]
     Indication: RECTAL CANCER
     Dates: start: 20041108

REACTIONS (12)
  - ANAEMIA [None]
  - ASTHENIA [None]
  - CULTURE URINE POSITIVE [None]
  - DEHYDRATION [None]
  - DIZZINESS [None]
  - ENTEROCOCCAL INFECTION [None]
  - GASTROINTESTINAL TOXICITY [None]
  - HIATUS HERNIA [None]
  - OESOPHAGEAL STENOSIS [None]
  - RENAL FAILURE [None]
  - SKIN TOXICITY [None]
  - URINARY RETENTION [None]
